FAERS Safety Report 7388358-5 (Version None)
Quarter: 2011Q2

REPORT INFORMATION
  Report Type: 
  Country: None (occurrence: None)
  Receive Date: 20110401
  Receipt Date: 20110318
  Transmission Date: 20111010
  Serious: Yes (Death, Other)
  Sender: FDA-Public Use
  Company Number: PHHY2011DE23919

PATIENT
  Sex: Male
  Weight: 73 kg

DRUGS (4)
  1. ESTRAMUSTINE [Concomitant]
     Dosage: 280 MG, TID
     Dates: start: 20090720
  2. TAXOTERE [Concomitant]
     Dosage: UNK
     Dates: start: 20090729
  3. ZOMETA [Suspect]
     Indication: BONE DISORDER
     Dosage: 4 MG, EVERY A WEEKS
     Route: 042
     Dates: start: 20090720
  4. PREDNISONE [Concomitant]
     Dosage: UNK
     Dates: start: 20090729

REACTIONS (2)
  - GASTROINTESTINAL HAEMORRHAGE [None]
  - NEOPLASM MALIGNANT [None]
